FAERS Safety Report 17847843 (Version 1)
Quarter: 2020Q2

REPORT INFORMATION
  Report Type: Spontaneous
  Country: CA (occurrence: CA)
  Receive Date: 20200601
  Receipt Date: 20200601
  Transmission Date: 20200714
  Serious: Yes (Hospitalization, Other)
  Sender: FDA-Public Use
  Company Number: CA-FRESENIUS KABI-FK202005380

PATIENT
  Age: 52 Year
  Sex: Male

DRUGS (1)
  1. FENTANYL (MANUFACTURER UNKNOWN) [Suspect]
     Active Substance: FENTANYL
     Indication: PRODUCT USED FOR UNKNOWN INDICATION
     Dosage: UNKNOWN
     Route: 065

REACTIONS (7)
  - Leukoencephalopathy [Recovered/Resolved with Sequelae]
  - Parkinsonism [Recovered/Resolved with Sequelae]
  - Ischaemia [Recovered/Resolved with Sequelae]
  - Hypoventilation [Recovered/Resolved with Sequelae]
  - Amnestic disorder [Recovered/Resolved with Sequelae]
  - Overdose [Recovered/Resolved with Sequelae]
  - Hypoxia [Recovered/Resolved with Sequelae]
